FAERS Safety Report 5208414-7 (Version None)
Quarter: 2006Q4

REPORT INFORMATION
  Report Type: 
  Country: None (occurrence: None)
  Receive Date: 20061027
  Receipt Date: 20060302
  Transmission Date: 20070319
  Serious: Yes (Hospitalization, Other)
  Sender: FDA-Public Use
  Company Number: HQWYE929616AUG05

PATIENT
  Age: 55 Year
  Sex: Female
  Weight: 77.18 kg

DRUGS (8)
  1. PREMARIN [Suspect]
     Indication: HEADACHE
  2. PREMARIN [Suspect]
     Indication: HOT FLUSH
  3. PREMARIN [Suspect]
     Indication: MOOD SWINGS
  4. PREMARIN [Suspect]
     Indication: VULVOVAGINAL DRYNESS
  5. PROVERA [Suspect]
     Indication: HEADACHE
  6. PROVERA [Suspect]
     Indication: HOT FLUSH
  7. PROVERA [Suspect]
     Indication: MOOD SWINGS
  8. PROVERA [Suspect]
     Indication: VULVOVAGINAL DRYNESS

REACTIONS (1)
  - BREAST CANCER [None]
